FAERS Safety Report 24533521 (Version 2)
Quarter: 2025Q1

REPORT INFORMATION
  Report Type: Spontaneous
  Country: US (occurrence: US)
  Receive Date: 20241022
  Receipt Date: 20250326
  Transmission Date: 20250408
  Serious: Yes (Other)
  Sender: BRISTOL-MYERS SQUIBB COMPANY
  Company Number: US-BRISTOL-MYERS SQUIBB COMPANY-2024-164974

PATIENT
  Age: 60 Year
  Sex: Female
  Weight: 80.74 kg

DRUGS (2)
  1. POMALYST [Suspect]
     Active Substance: POMALIDOMIDE
     Indication: Plasma cell myeloma
     Dosage: 1 CAPSULE DAILY FOR 21 DAYS, THEN 7 DAYS OFF
     Route: 048
     Dates: start: 20240801
  2. POMALYST [Suspect]
     Active Substance: POMALIDOMIDE
     Dosage: 3MG DAILY FOR 21 DAYS ON THEN 7 DAYS OFF.

REACTIONS (2)
  - Plasma cell myeloma [Unknown]
  - White blood cell count decreased [Recovering/Resolving]
